FAERS Safety Report 8954608 (Version 1)
Quarter: 2012Q4

REPORT INFORMATION
  Report Type: 
  Country: DE (occurrence: DE)
  Receive Date: 20121207
  Receipt Date: 20121207
  Transmission Date: 20130627
  Serious: Yes (Other)
  Sender: FDA-Public Use
  Company Number: DE-MYLANLABS-2012S1024497

PATIENT
  Age: 32 Year
  Sex: Female
  Weight: 60 kg

DRUGS (4)
  1. AZATHIOPRINE [Suspect]
     Indication: COLITIS ULCERATIVE
     Dosage: 150 [mg/d ]
     Route: 048
     Dates: end: 20120610
  2. PENTASA [Concomitant]
     Indication: COLITIS ULCERATIVE
     Dosage: once a day, dosage unknown
     Route: 048
     Dates: start: 20120110, end: 20120610
  3. CEFUROXIM /00454602/ [Concomitant]
     Indication: INFECTION
     Route: 042
  4. INDOMETACIN [Concomitant]
     Indication: PREMATURE LABOUR
     Dosage: after gestational week 20 for 2 days
     Route: 042

REACTIONS (4)
  - Exposure during pregnancy [Recovered/Resolved]
  - Premature labour [Recovered/Resolved]
  - Cervical incompetence [Recovered/Resolved]
  - Infection [Recovered/Resolved]
